FAERS Safety Report 10075492 (Version 1)
Quarter: 2014Q2

REPORT INFORMATION
  Report Type: Spontaneous
  Country: BR (occurrence: BR)
  Receive Date: 20140414
  Receipt Date: 20140414
  Transmission Date: 20141212
  Serious: Yes (Other)
  Sender: FDA-Public Use
  Company Number: BR-JNJFOC-20140406338

PATIENT
  Age: 57 Year
  Sex: Female
  Weight: 58 kg

DRUGS (10)
  1. REMICADE [Suspect]
     Indication: RHEUMATOID ARTHRITIS
     Route: 042
     Dates: start: 20131118
  2. REMICADE [Suspect]
     Indication: RHEUMATOID ARTHRITIS
     Route: 042
     Dates: start: 2010
  3. METHOTREXATE [Concomitant]
     Indication: RHEUMATOID ARTHRITIS
     Route: 065
  4. CITALOR [Concomitant]
     Indication: BLOOD CHOLESTEROL INCREASED
     Route: 065
     Dates: start: 201309
  5. MAREVAN [Concomitant]
     Indication: CARDIAC DISORDER
     Route: 065
  6. ENALAPRIL MALEATE [Concomitant]
     Route: 065
  7. LORAZEPAM [Concomitant]
     Indication: SLEEP DISORDER THERAPY
     Route: 065
  8. DAFORIN [Concomitant]
     Indication: STRESS
     Route: 065
  9. FUROSEMIDE [Concomitant]
     Route: 065
  10. CARVEDILOL [Concomitant]
     Indication: CARDIAC DISORDER
     Route: 065

REACTIONS (1)
  - Cardiac operation [Recovered/Resolved]
